FAERS Safety Report 10043564 (Version 1)
Quarter: 2014Q1

REPORT INFORMATION
  Report Type: Spontaneous
  Country: GB (occurrence: None)
  Receive Date: 20140326
  Receipt Date: 20140326
  Transmission Date: 20141002
  Serious: Yes (Life-Threatening)
  Sender: FDA-Public Use
  Company Number: PI-10214

PATIENT
  Age: 72 Year
  Sex: Female

DRUGS (6)
  1. CHLORAPREP [Suspect]
     Indication: PREOPERATIVE CARE
     Route: 061
     Dates: start: 20090101, end: 20131101
  2. CHLORAPREP [Suspect]
     Indication: INFECTION PROPHYLAXIS
     Route: 061
     Dates: start: 20090101, end: 20131101
  3. ALFACALCIDOL [Concomitant]
  4. ASPIRIN [Concomitant]
  5. LANTHANUM [Concomitant]
  6. SIMVASTATIN [Concomitant]

REACTIONS (3)
  - Pain of skin [None]
  - Skin irritation [None]
  - Scab [None]
